FAERS Safety Report 26042517 (Version 4)
Quarter: 2025Q4

REPORT INFORMATION
  Report Type: Spontaneous
  Country: US (occurrence: US)
  Receive Date: 20251113
  Receipt Date: 20251126
  Transmission Date: 20260117
  Serious: No
  Sender: ABBVIE
  Company Number: US-ABBVIE-6543743

PATIENT
  Age: 67 Year
  Sex: Female
  Weight: 68.038 kg

DRUGS (8)
  1. SYNTHROID [Suspect]
     Active Substance: LEVOTHYROXINE SODIUM
     Indication: Autoimmune thyroiditis
     Route: 048
     Dates: start: 202403
  2. SYNTHROID [Suspect]
     Active Substance: LEVOTHYROXINE SODIUM
     Indication: Autoimmune thyroiditis
     Route: 048
     Dates: start: 20251017
  3. SYNTHROID [Suspect]
     Active Substance: LEVOTHYROXINE SODIUM
     Indication: Autoimmune thyroiditis
     Dosage: FORM STRENGTH: 50 MICROGRAM
     Route: 048
  4. SYNTHROID [Suspect]
     Active Substance: LEVOTHYROXINE SODIUM
     Indication: Autoimmune thyroiditis
     Dosage: FORM STRENGTH: 75 MICROGRAM
     Route: 048
  5. SYNTHROID [Suspect]
     Active Substance: LEVOTHYROXINE SODIUM
     Indication: Autoimmune thyroiditis
     Dosage: FORM STRENGTH: 88 MICROGRAM
     Route: 048
  6. LEVOTHYROXINE [Suspect]
     Active Substance: LEVOTHYROXINE
     Indication: Autoimmune thyroiditis
     Route: 048
     Dates: start: 2024
  7. LEVOTHYROXINE [Suspect]
     Active Substance: LEVOTHYROXINE
     Indication: Autoimmune thyroiditis
     Route: 048
     Dates: start: 202311
  8. LEVOTHYROXINE [Suspect]
     Active Substance: LEVOTHYROXINE
     Indication: Autoimmune thyroiditis
     Route: 048
     Dates: start: 2024

REACTIONS (21)
  - Weight increased [Not Recovered/Not Resolved]
  - Glomerular filtration rate decreased [Unknown]
  - Chronic kidney disease [Unknown]
  - Thyroid hormones increased [Unknown]
  - Dry eye [Unknown]
  - Product use complaint [Unknown]
  - Alopecia [Recovering/Resolving]
  - Abdominal distension [Recovered/Resolved]
  - Drug ineffective [Not Recovered/Not Resolved]
  - Brain fog [Recovered/Resolved]
  - Dry mouth [Unknown]
  - Constipation [Recovered/Resolved]
  - Scabies [Unknown]
  - Hair texture abnormal [Unknown]
  - Product physical issue [Not Recovered/Not Resolved]
  - Autoimmune thyroiditis [Unknown]
  - Hypothyroidism [Unknown]
  - Product temperature excursion issue [Not Recovered/Not Resolved]
  - Skin disorder [Recovering/Resolving]
  - Blood thyroid stimulating hormone increased [Unknown]
  - Dry throat [Unknown]

NARRATIVE: CASE EVENT DATE: 20250701
